FAERS Safety Report 6479856-7 (Version None)
Quarter: 2009Q4

REPORT INFORMATION
  Report Type: 
  Country: None (occurrence: None)
  Receive Date: 20091119
  Receipt Date: 20091006
  Transmission Date: 20100525
  Serious: No
  Sender: FDA-Public Use
  Company Number: WAES 0910USA00704

PATIENT
  Age: 46 Year
  Sex: Female

DRUGS (3)
  1. JANUVIA [Suspect]
     Indication: TYPE 2 DIABETES MELLITUS
     Dosage: 100 MG/DAILY/PO
     Route: 048
     Dates: start: 20070101
  2. PAXIL [Concomitant]
  3. XANAX [Concomitant]

REACTIONS (3)
  - ECZEMA [None]
  - IRON DEFICIENCY [None]
  - VITAMIN B12 DEFICIENCY [None]
